FAERS Safety Report 7754225-8 (Version None)
Quarter: 2011Q3

REPORT INFORMATION
  Report Type: 
  Country: None (occurrence: None)
  Receive Date: 20110915
  Receipt Date: 20110913
  Transmission Date: 20111222
  Serious: Yes (Death, Other)
  Sender: FDA-Public Use
  Company Number: JP-BRACCO-005126

PATIENT
  Sex: Male
  Weight: 72 kg

DRUGS (6)
  1. IOPAMIDOL [Suspect]
     Indication: SHUNT STENOSIS
     Dosage: ADMINISTERED ON LEFT BRACHIAL VEIN 5 ML/S
     Route: 042
     Dates: start: 20110811, end: 20110811
  2. ADALAT [Concomitant]
     Indication: HYPERTENSION
     Dates: start: 20110315, end: 20110811
  3. CARVEDILOL [Concomitant]
     Indication: CARDIAC FAILURE
     Dates: start: 20110301, end: 20110811
  4. IOPAMIDOL [Suspect]
     Indication: ANGIOGRAM
     Dosage: ADMINISTERED ON LEFT BRACHIAL VEIN 5 ML/S
     Route: 042
     Dates: start: 20110811, end: 20110811
  5. NOVORAPID [Concomitant]
     Indication: DIABETES MELLITUS
     Dates: start: 20110315, end: 20110811
  6. ALLOPURINOL [Concomitant]
     Indication: HYPERURICAEMIA
     Dates: start: 20110413, end: 20110811

REACTIONS (1)
  - CARDIO-RESPIRATORY ARREST [None]
